FAERS Safety Report 5308632-3 (Version None)
Quarter: 2007Q2

REPORT INFORMATION
  Report Type: 
  Country: None (occurrence: None)
  Receive Date: 20070426
  Receipt Date: 20070423
  Transmission Date: 20071010
  Serious: Yes (Other)
  Sender: FDA-Public Use
  Company Number: ES-AVENTIS-200713538GDDC

PATIENT
  Age: 43 Year
  Sex: Male

DRUGS (2)
  1. TAXOTERE [Suspect]
     Indication: BRONCHIAL CARCINOMA
     Dosage: DOSE: 80 MG (1 VIAL 2 MG)
     Route: 042
     Dates: start: 20070319, end: 20070319
  2. TAXOTERE [Suspect]
     Indication: LUNG NEOPLASM MALIGNANT
     Dosage: DOSE: 80 MG (1 VIAL 2 MG)
     Route: 042
     Dates: start: 20070319, end: 20070319

REACTIONS (4)
  - CYANOSIS [None]
  - DYSPNOEA [None]
  - HYPERTONIA [None]
  - SYNCOPE [None]
